FAERS Safety Report 9434999 (Version 1)
Quarter: 2013Q3

REPORT INFORMATION
  Report Type: Report from Study
  Country: GB (occurrence: GB)
  Receive Date: 20130801
  Receipt Date: 20130801
  Transmission Date: 20140515
  Serious: Yes (Hospitalization)
  Sender: FDA-Public Use
  Company Number: PHFR2013GB004309

PATIENT
  Sex: Female

DRUGS (1)
  1. TOBI PODHALER [Suspect]
     Dosage: UNK

REACTIONS (1)
  - Malaise [Unknown]
